FAERS Safety Report 15248935 (Version 2)
Quarter: 2018Q3

REPORT INFORMATION
  Report Type: Spontaneous
  Country: US (occurrence: US)
  Receive Date: 20180807
  Receipt Date: 20180809
  Transmission Date: 20181010
  Serious: No
  Sender: FDA-Public Use
  Company Number: US-PFIZER INC-2018313581

PATIENT
  Age: 58 Year
  Sex: Female
  Weight: 106 kg

DRUGS (4)
  1. LOSARTAN. [Concomitant]
     Active Substance: LOSARTAN
     Indication: HYPERTENSION
     Dosage: 180 MG, DAILY (3 TABLETS TAKEN BY MOUTH EVERY DAY)
     Route: 048
  2. GABAPENTIN. [Suspect]
     Active Substance: GABAPENTIN
     Indication: DIABETIC NEUROPATHY
     Dosage: 600 MG, 3X/DAY
     Route: 048
  3. INVOKANA [Concomitant]
     Active Substance: CANAGLIFLOZIN
     Indication: BLOOD GLUCOSE ABNORMAL
     Dosage: 300 MG, DAILY (TAKEN BY MOUTH EVERY DAY)
     Route: 048
     Dates: start: 2016
  4. CARVEDILOL. [Concomitant]
     Active Substance: CARVEDILOL
     Indication: HYPERTENSION
     Dosage: 25 MG, DAILY (2 TABLETS TAKEN BY MOUTH DAILY)
     Route: 048

REACTIONS (2)
  - Product use in unapproved indication [Unknown]
  - Drug ineffective for unapproved indication [Unknown]
